FAERS Safety Report 15133841 (Version 3)
Quarter: 2018Q3

REPORT INFORMATION
  Report Type: Spontaneous
  Country: US (occurrence: US)
  Receive Date: 20180712
  Receipt Date: 20180821
  Transmission Date: 20181010
  Serious: Yes (Hospitalization, Other)
  Sender: FDA-Public Use
  Company Number: US-JNJFOC-20180636190

PATIENT
  Age: 67 Year
  Sex: Female
  Weight: 77.11 kg

DRUGS (19)
  1. CYMBALTA [Concomitant]
     Active Substance: DULOXETINE HYDROCHLORIDE
     Route: 065
  2. PRAVASTATIN. [Concomitant]
     Active Substance: PRAVASTATIN
     Route: 065
  3. APIDRA [Concomitant]
     Active Substance: INSULIN GLULISINE
     Route: 065
  4. SYNTHROID [Concomitant]
     Active Substance: LEVOTHYROXINE SODIUM
     Route: 065
  5. VOLTAREN [Concomitant]
     Active Substance: DICLOFENAC SODIUM
     Route: 065
  6. DEMADEX [Concomitant]
     Active Substance: TORSEMIDE
     Route: 065
  7. AMLODIPINE [Concomitant]
     Active Substance: AMLODIPINE BESYLATE
     Route: 065
  8. PHENERGAN [Concomitant]
     Active Substance: PROMETHAZINE HYDROCHLORIDE
     Route: 065
  9. SIMPONI [Suspect]
     Active Substance: GOLIMUMAB
     Indication: ANKYLOSING SPONDYLITIS
     Route: 058
     Dates: start: 201802
  10. ZANAFLEX [Concomitant]
     Active Substance: TIZANIDINE HYDROCHLORIDE
     Route: 065
  11. ZOFRAN [Concomitant]
     Active Substance: ONDANSETRON HYDROCHLORIDE
     Route: 065
  12. LOSARTAN. [Concomitant]
     Active Substance: LOSARTAN
     Route: 065
  13. SIMPONI [Suspect]
     Active Substance: GOLIMUMAB
     Indication: PSORIATIC ARTHROPATHY
     Route: 058
     Dates: start: 201802
  14. SIMPONI [Suspect]
     Active Substance: GOLIMUMAB
     Indication: RHEUMATOID ARTHRITIS
     Route: 058
     Dates: start: 201802
  15. LEVEMIR [Concomitant]
     Active Substance: INSULIN DETEMIR
     Route: 065
  16. PROLIA [Concomitant]
     Active Substance: DENOSUMAB
     Route: 065
  17. TRAMADOL. [Concomitant]
     Active Substance: TRAMADOL
     Route: 065
  18. INVOKANA [Concomitant]
     Active Substance: CANAGLIFLOZIN
     Route: 065
  19. CLINDAMYCIN. [Concomitant]
     Active Substance: CLINDAMYCIN
     Route: 065

REACTIONS (11)
  - Fall [Unknown]
  - Psoriatic arthropathy [Not Recovered/Not Resolved]
  - Labyrinthitis [Unknown]
  - Loss of consciousness [Unknown]
  - Concussion [Unknown]
  - Rheumatoid arthritis [Not Recovered/Not Resolved]
  - Hypertension [Unknown]
  - Post lumbar puncture syndrome [Unknown]
  - Ankylosing spondylitis [Not Recovered/Not Resolved]
  - Haemorrhage [Unknown]
  - Drug dose omission [Unknown]

NARRATIVE: CASE EVENT DATE: 2018
